FAERS Safety Report 15404011 (Version 1)
Quarter: 2018Q3

REPORT INFORMATION
  Report Type: Spontaneous
  Country: US (occurrence: US)
  Receive Date: 20180919
  Receipt Date: 20180919
  Transmission Date: 20181010
  Serious: No
  Sender: FDA-Public Use
  Company Number: US-AVADEL SPECIALTY PHARMACEUTICALS, LLC-2018AVA00162

PATIENT
  Sex: Female
  Weight: 90.7 kg

DRUGS (7)
  1. NOCTIVA [Suspect]
     Active Substance: DESMOPRESSIN ACETATE
     Indication: NOCTURIA
     Dosage: 3.32 ?G, 1X/DAY AT BEDTIME
     Route: 045
     Dates: start: 2018, end: 2018
  2. AMLODIPINE [Concomitant]
     Active Substance: AMLODIPINE BESYLATE
  3. DIOVAN [Concomitant]
     Active Substance: VALSARTAN
  4. LOVASTATIN. [Concomitant]
     Active Substance: LOVASTATIN
  5. VENLAFAXINE [Concomitant]
     Active Substance: VENLAFAXINE HYDROCHLORIDE
  6. DEXILANT [Concomitant]
     Active Substance: DEXLANSOPRAZOLE
  7. LEVOXYL [Concomitant]
     Active Substance: LEVOTHYROXINE SODIUM

REACTIONS (6)
  - Drug ineffective [Recovered/Resolved]
  - Rhinalgia [Unknown]
  - Nasal discomfort [Unknown]
  - Product preparation error [Recovered/Resolved]
  - Blister rupture [Recovering/Resolving]
  - Blister [Recovering/Resolving]

NARRATIVE: CASE EVENT DATE: 2018
